FAERS Safety Report 24847089 (Version 2)
Quarter: 2025Q1

REPORT INFORMATION
  Report Type: Report from Study
  Country: CA (occurrence: CA)
  Receive Date: 20250115
  Receipt Date: 20250311
  Transmission Date: 20250408
  Serious: Yes (Other)
  Sender: JOHNSON AND JOHNSON
  Company Number: CA-JNJFOC-20240906634

PATIENT
  Sex: Female
  Weight: 64 kg

DRUGS (3)
  1. SIMPONI [Suspect]
     Active Substance: GOLIMUMAB
     Indication: Rheumatoid arthritis
     Route: 041
     Dates: start: 20210316
  2. SIMPONI [Suspect]
     Active Substance: GOLIMUMAB
     Route: 041
  3. SIMPONI [Suspect]
     Active Substance: GOLIMUMAB
     Route: 041

REACTIONS (4)
  - Rheumatoid arthritis [Recovering/Resolving]
  - Osteoarthritis [Not Recovered/Not Resolved]
  - Gastroenteritis [Unknown]
  - Hypertension [Unknown]
